FAERS Safety Report 19458033 (Version 1)
Quarter: 2021Q2

REPORT INFORMATION
  Report Type: Spontaneous
  Country: FR (occurrence: FR)
  Receive Date: 20210624
  Receipt Date: 20210624
  Transmission Date: 20210717
  Serious: Yes (Death)
  Sender: FDA-Public Use
  Company Number: FR-MYLANLABS-2021M1037039

PATIENT
  Age: 39 Year
  Sex: Male

DRUGS (1)
  1. PRAMIPEXOLE. [Suspect]
     Active Substance: PRAMIPEXOLE
     Indication: RESTLESS LEGS SYNDROME
     Dosage: 0.36 MILLIGRAM, QD
     Route: 048
     Dates: start: 201810, end: 20181104

REACTIONS (5)
  - Abnormal behaviour [Fatal]
  - Suicidal ideation [Fatal]
  - Irritability [Fatal]
  - Completed suicide [Fatal]
  - Delusional disorder, jealous type [Fatal]

NARRATIVE: CASE EVENT DATE: 201810
